FAERS Safety Report 8878949 (Version 2)
Quarter: 2013Q1

REPORT INFORMATION
  Report Type: Spontaneous
  Country: US (occurrence: US)
  Receive Date: 20121026
  Receipt Date: 20130204
  Transmission Date: 20140127
  Serious: Yes (Other)
  Sender: FDA-Public Use
  Company Number: US-FRI-1000039532

PATIENT
  Age: 58 Year
  Sex: Female
  Weight: 61 kg

DRUGS (4)
  1. ARMOUR THYROID [Suspect]
     Indication: HYPOTHYROIDISM
     Dosage: 60 MG MONDAYS-SATURDAYS AND 90 MG SUNDAYS
  2. FLEXICOSE [Concomitant]
     Indication: ARTHRITIS
  3. KRILL OIL [Concomitant]
     Dosage: DAILY
  4. VIT D3 [Concomitant]
     Dosage: DAILY

REACTIONS (3)
  - Hyperparathyroidism [Unknown]
  - Blood creatinine increased [Not Recovered/Not Resolved]
  - Blood creatine increased [Not Recovered/Not Resolved]
